FAERS Safety Report 14258544 (Version 1)
Quarter: 2017Q4

REPORT INFORMATION
  Report Type: Spontaneous
  Country: US (occurrence: US)
  Receive Date: 20171204
  Receipt Date: 20171204
  Transmission Date: 20180321
  Serious: Yes (Hospitalization, Other)
  Sender: FDA-Public Use
  Company Number: None

PATIENT
  Age: 37 Year
  Sex: Female
  Weight: 50 kg

DRUGS (1)
  1. STEROID CREAM [Suspect]
     Active Substance: UNSPECIFIED INGREDIENT

REACTIONS (4)
  - Dysgraphia [None]
  - Impaired healing [None]
  - Eczema [None]
  - Loss of personal independence in daily activities [None]

NARRATIVE: CASE EVENT DATE: 20130911
